FAERS Safety Report 8985015 (Version 4)
Quarter: 2013Q4

REPORT INFORMATION
  Report Type: Report from Study
  Country: DE (occurrence: DE)
  Receive Date: 20121226
  Receipt Date: 20131224
  Transmission Date: 20140711
  Serious: Yes (Death, Hospitalization, Other)
  Sender: FDA-Public Use
  Company Number: PHHY2012DE017948

PATIENT
  Age: 83 Year
  Sex: Female
  Weight: 67 kg

DRUGS (5)
  1. ICL670A [Suspect]
     Indication: ACUTE MYELOID LEUKAEMIA
     Dosage: 500 MG, DAILY
     Route: 048
     Dates: start: 20110527, end: 20110623
  2. ICL670A [Suspect]
     Dosage: 1500 MG, DAILY
     Route: 048
     Dates: start: 20110815
  3. GRANOCYTE [Concomitant]
     Indication: NAUSEA
     Dosage: UNK UKN, UNK
     Dates: start: 20110926
  4. VERGENTAN [Concomitant]
     Dosage: 50 MG, DAILY
     Dates: start: 20111025
  5. AZACITIDINE [Concomitant]
     Dosage: 69 MG, EVERY 4 WEEKS
     Dates: start: 20121024, end: 20121127

REACTIONS (7)
  - Acute myeloid leukaemia [Fatal]
  - Circulatory collapse [Recovered/Resolved]
  - Dehydration [Recovered/Resolved]
  - Pathological fracture [Not Recovered/Not Resolved]
  - General physical health deterioration [Not Recovered/Not Resolved]
  - Blood creatinine increased [Recovered/Resolved]
  - Creatinine renal clearance decreased [Unknown]
